FAERS Safety Report 22250298 (Version 1)
Quarter: 2023Q2

REPORT INFORMATION
  Report Type: Spontaneous
  Country: JP (occurrence: JP)
  Receive Date: 20230425
  Receipt Date: 20230425
  Transmission Date: 20230722
  Serious: Yes (Hospitalization, Other)
  Sender: FDA-Public Use
  Company Number: JP-GSKJP-JP2023JPN026849AA

PATIENT

DRUGS (16)
  1. DAPRODUSTAT [Suspect]
     Active Substance: DAPRODUSTAT
     Indication: Nephrogenic anaemia
     Dosage: 2 MG, QD
     Route: 048
     Dates: start: 20220912, end: 20221122
  2. DAPRODUSTAT [Suspect]
     Active Substance: DAPRODUSTAT
     Dosage: 4 MG, QD
     Route: 048
     Dates: start: 20221123, end: 20221227
  3. DAPRODUSTAT [Suspect]
     Active Substance: DAPRODUSTAT
     Dosage: 2 MG, QD
     Route: 048
     Dates: start: 20221228, end: 20230213
  4. PREDONINE [Suspect]
     Active Substance: PREDNISOLONE
     Indication: Nephrotic syndrome
     Dosage: 10 MG, QD, AFTER BREAKFAST
     Dates: start: 20220719
  5. PREDONINE [Suspect]
     Active Substance: PREDNISOLONE
     Dosage: UNK, REDUCTION OF QUANTITY
  6. RABEPRAZOLE NA TOWA TABLETS [Concomitant]
     Indication: Gastritis prophylaxis
     Dosage: 10 MG, QD, AFTER DINNER
     Dates: start: 20220719
  7. ATOVAQUONE [Concomitant]
     Active Substance: ATOVAQUONE
     Indication: Infection prophylaxis
     Dosage: 10 ML, QD, AFTER BREAKFAST
     Dates: start: 20220812
  8. ROCALTROL [Concomitant]
     Active Substance: CALCITRIOL
     Indication: Osteoporosis
     Dosage: 0.25 ?G, QD, AFTER BREAKFAST
     Dates: start: 20220722
  9. EZETIMIBE TABLET [Concomitant]
     Indication: Dyslipidaemia
     Dosage: 10 MG, QD, AFTER DINNER
     Dates: start: 20220713
  10. TELMISARTAN [Concomitant]
     Active Substance: TELMISARTAN
     Indication: Hypertension
     Dosage: 40 MG, QD, AFTER BREAKFAST
     Dates: start: 20220804
  11. NIFEDIPINE CR TABLETS [Concomitant]
     Indication: Hypertension
     Dosage: 20 MG, BID, AFTER BREAKFAST AND DINNER
     Dates: start: 20220802
  12. FUROSEMIDE [Concomitant]
     Active Substance: FUROSEMIDE
     Indication: Oedema
     Dosage: 20 MG, QD, AFTER BREAKFAST
     Dates: start: 20220714
  13. MEMANTINE HYDROCHLORIDE OD [Concomitant]
     Indication: Dementia Alzheimer^s type
     Dosage: 10 MG, QD, AFTER BREAKFAST
     Dates: start: 20220714
  14. LAGNOS NF JELLY FOR ORAL ADMINISTRATION DIVIDED PACK [Concomitant]
     Indication: Constipation
     Dosage: 24 G, BID, AFTER BREAKFAST AND DINNER
     Dates: start: 20220811
  15. LINZESS TABLETS [Concomitant]
     Indication: Constipation
     Dosage: 0.5 MG, QD, BEFORE BREAKFAST
     Dates: start: 20220728
  16. SENNOSIDES [Concomitant]
     Active Substance: SENNOSIDES
     Indication: Constipation
     Dosage: 12 MG, QD, BEFORE BEDTIME
     Dates: start: 20220726

REACTIONS (4)
  - Venous thrombosis limb [Recovering/Resolving]
  - Oedema peripheral [Unknown]
  - Hyperglycaemia [Recovering/Resolving]
  - Steroid diabetes [Recovering/Resolving]

NARRATIVE: CASE EVENT DATE: 20221123
